FAERS Safety Report 25067757 (Version 4)
Quarter: 2025Q2

REPORT INFORMATION
  Report Type: Report from Study
  Country: US (occurrence: US)
  Receive Date: 20250312
  Receipt Date: 20250617
  Transmission Date: 20250716
  Serious: Yes (Hospitalization, Other)
  Sender: TAKEDA
  Company Number: US-TAKEDA-2024TUS033554

PATIENT
  Age: 62 Year
  Sex: Female
  Weight: 98.5 kg

DRUGS (8)
  1. FRUQUINTINIB [Suspect]
     Active Substance: FRUQUINTINIB
     Indication: Colon cancer
     Dates: start: 20240401, end: 20240406
  2. FRUQUINTINIB [Suspect]
     Active Substance: FRUQUINTINIB
  3. FRUQUINTINIB [Suspect]
     Active Substance: FRUQUINTINIB
  4. FRUQUINTINIB [Suspect]
     Active Substance: FRUQUINTINIB
  5. FRUQUINTINIB [Suspect]
     Active Substance: FRUQUINTINIB
  6. FRUQUINTINIB [Suspect]
     Active Substance: FRUQUINTINIB
     Dosage: 3 MILLIGRAM, QD
  7. LONSURF [Suspect]
     Active Substance: TIPIRACIL HYDROCHLORIDE\TRIFLURIDINE
     Indication: Colon cancer
  8. LONSURF [Suspect]
     Active Substance: TIPIRACIL HYDROCHLORIDE\TRIFLURIDINE
     Dosage: 30 MILLIGRAM, BID
     Dates: start: 202504

REACTIONS (24)
  - Colon cancer [Unknown]
  - Bronchitis [Unknown]
  - Blood potassium abnormal [Unknown]
  - Blood magnesium abnormal [Unknown]
  - Vomiting [Unknown]
  - Photophobia [Unknown]
  - Pain [Unknown]
  - Bladder disorder [Unknown]
  - Migraine [Unknown]
  - Eye pain [Unknown]
  - Tongue geographic [Unknown]
  - Chest discomfort [Unknown]
  - Chest pain [Unknown]
  - Product coating issue [Unknown]
  - Cough [Unknown]
  - Dyspnoea [Unknown]
  - Abdominal pain upper [Unknown]
  - Back pain [Unknown]
  - Pain in extremity [Unknown]
  - Diarrhoea [Unknown]
  - Arthralgia [Unknown]
  - Oropharyngeal pain [Unknown]
  - Platelet count decreased [Unknown]
  - Blood pressure increased [Unknown]

NARRATIVE: CASE EVENT DATE: 20240401
